FAERS Safety Report 21435737 (Version 1)
Quarter: 2022Q4

REPORT INFORMATION
  Report Type: Spontaneous
  Country: FR (occurrence: FR)
  Receive Date: 20221010
  Receipt Date: 20221010
  Transmission Date: 20230113
  Serious: Yes (Hospitalization)
  Sender: FDA-Public Use
  Company Number: None

PATIENT
  Age: 77 Year
  Sex: Female
  Weight: 87 kg

DRUGS (3)
  1. AMIODARONE [Suspect]
     Active Substance: AMIODARONE
     Indication: Atrial fibrillation
     Dosage: 200 MILLIGRAM, QD
     Route: 048
     Dates: start: 20211209, end: 20211227
  2. IOVERSOL [Suspect]
     Active Substance: IOVERSOL
     Indication: Scan with contrast
     Dosage: 1 DOSAGE FORM
     Route: 065
     Dates: start: 20211215, end: 20211215
  3. IOMERON [Suspect]
     Active Substance: IOMEPROL
     Indication: Scan with contrast
     Dosage: 1 DOSAGE FORM
     Route: 065
     Dates: start: 20211208, end: 20211208

REACTIONS (2)
  - Eosinophilia [Recovered/Resolved]
  - Rash [Recovered/Resolved]

NARRATIVE: CASE EVENT DATE: 20211223
